FAERS Safety Report 9466951 (Version 2)
Quarter: 2013Q3

REPORT INFORMATION
  Report Type: Spontaneous
  Country: DE (occurrence: DE)
  Receive Date: 20130820
  Receipt Date: 20130820
  Transmission Date: 20140515
  Serious: Yes (Hospitalization)
  Sender: FDA-Public Use
  Company Number: DE-ELI_LILLY_AND_COMPANY-DE201307008194

PATIENT
  Age: 70 Year
  Sex: Male

DRUGS (12)
  1. EFIENT [Suspect]
     Indication: STENT PLACEMENT
     Dosage: 10 MG, UNK
     Route: 048
     Dates: start: 20130613, end: 20130710
  2. CANDESARTAN [Concomitant]
     Dosage: 8 MG, UNK
  3. PROCORALAN [Concomitant]
     Dosage: 5 MG, UNK
  4. CLOPIDOGREL [Concomitant]
     Dosage: 75 MG, UNK
  5. ASS [Concomitant]
     Dosage: 100 MG, UNK
  6. ACC LONG [Concomitant]
  7. APSOMOL                            /00139501/ [Concomitant]
     Route: 055
  8. CALCIMAGON D3 [Concomitant]
  9. PREDNISOLON [Concomitant]
  10. VIANI [Concomitant]
     Route: 055
  11. THEOPHYLLIN [Concomitant]
     Dosage: 600 MG, UNK
  12. PANTOPRAZOL [Concomitant]
     Dosage: 40 MG, PRN

REACTIONS (11)
  - Tendon rupture [Not Recovered/Not Resolved]
  - Daydreaming [Not Recovered/Not Resolved]
  - Apathy [Not Recovered/Not Resolved]
  - Muscular weakness [Not Recovered/Not Resolved]
  - Angina pectoris [Recovered/Resolved]
  - Fall [Unknown]
  - Haematoma [Unknown]
  - Injury [Unknown]
  - Bleeding time prolonged [Unknown]
  - Haemorrhage [Unknown]
  - Depressed mood [Unknown]
